FAERS Safety Report 17093517 (Version 1)
Quarter: 2019Q4

REPORT INFORMATION
  Report Type: Spontaneous
  Country: FR (occurrence: FR)
  Receive Date: 20191129
  Receipt Date: 20191129
  Transmission Date: 20200122
  Serious: Yes (Other)
  Sender: FDA-Public Use
  Company Number: NVSC2019FR050257

PATIENT
  Sex: Male

DRUGS (1)
  1. CALCIUM GLUCONATE. [Suspect]
     Active Substance: CALCIUM GLUCONATE
     Indication: HYPOCALCAEMIA
     Dosage: UNK
     Route: 042

REACTIONS (5)
  - Necrosis [Unknown]
  - Extravasation [Unknown]
  - Compartment syndrome [Unknown]
  - Peripheral swelling [Unknown]
  - Ischaemia [Unknown]
